FAERS Safety Report 23364896 (Version 17)
Quarter: 2024Q4

REPORT INFORMATION
  Report Type: Spontaneous
  Country: CA (occurrence: CA)
  Receive Date: 20240104
  Receipt Date: 20241230
  Transmission Date: 20250115
  Serious: Yes (Hospitalization, Other)
  Sender: CELLTRION
  Company Number: CA-CELLTRION INC.-2023CA025276

PATIENT

DRUGS (15)
  1. INFLECTRA [Suspect]
     Active Substance: INFLIXIMAB-DYYB
     Indication: Crohn^s disease
     Dosage: 5 MG/KG, W 0, 2, 6 WEEKS THEN EVERY 8 WEEKS
     Route: 042
     Dates: start: 20231213
  2. INFLECTRA [Suspect]
     Active Substance: INFLIXIMAB-DYYB
     Dosage: 255 MG (5MG/KG), WEEK 2 INDUCTION
     Route: 042
     Dates: start: 20231227
  3. INFLECTRA [Suspect]
     Active Substance: INFLIXIMAB-DYYB
     Dosage: 270 MG (5 MG/KG), AFTER 3 WEEKS AND 6 DAYS (WEEK 6 INDUCTION)
     Route: 042
     Dates: start: 20240123
  4. INFLECTRA [Suspect]
     Active Substance: INFLIXIMAB-DYYB
     Dosage: 280 MG (5 MG/KG), EVERY 8 WEEKS
     Route: 042
     Dates: start: 20240319
  5. INFLECTRA [Suspect]
     Active Substance: INFLIXIMAB-DYYB
     Dosage: 5 MG/KG (275 MG), AFTER 8 WEEKS 1 DAY (PRESCRIBED EVERY 8 WEEKS)
     Route: 042
     Dates: start: 20240515
  6. INFLECTRA [Suspect]
     Active Substance: INFLIXIMAB-DYYB
     Dosage: 275 MG (5 MG/KG), W 0, 2, 6 WEEKS THEN EVERY 8 WEEKS
     Route: 042
     Dates: start: 20240710
  7. INFLECTRA [Suspect]
     Active Substance: INFLIXIMAB-DYYB
     Dosage: 580 MG (10MG/KG), WEEK 0 REINDUCTION (REINDUCTION AT WEEK 0, 2 AND 6, THEN EVERY 6 WEEKS)
     Route: 042
     Dates: start: 20240819
  8. INFLECTRA [Suspect]
     Active Substance: INFLIXIMAB-DYYB
     Dosage: 560 MG,  (10MG/KG), WEEK 2 - REINDUCTION [REINDUCTION AT WEEK 0, 2 AND 6, THEN EVERY 6 WEEKS]
     Route: 042
     Dates: start: 20240904
  9. INFLECTRA [Suspect]
     Active Substance: INFLIXIMAB-DYYB
     Dosage: 580 MG (10MG/KG) AFTER 6 WK AND 1 DAY (WK 6 REINDUCTION) (REINDUCTION AT WK 0, 2 AND 6, THEN Q 6 WK)
     Route: 042
     Dates: start: 20241001
  10. INFLECTRA [Suspect]
     Active Substance: INFLIXIMAB-DYYB
     Dosage: 10 MG/KG, REINDUCTION AT WEEK 0, 2 AND 6, THEN EVERY 6 WEEKS
     Route: 042
     Dates: start: 20241111
  11. INFLECTRA [Suspect]
     Active Substance: INFLIXIMAB-DYYB
     Dosage: 570 MG AFTER 6 WEEKS 1 DAYS (10 MG/KG, REINDUCTION AT WEEK 0, 2 AND 6, THEN EVERY 6 WEEKS)
     Route: 042
     Dates: start: 20241224
  12. ALLOPURINOL [Concomitant]
     Active Substance: ALLOPURINOL
     Dosage: UNK
  13. ATORVASTATIN [Concomitant]
     Active Substance: ATORVASTATIN
     Dosage: UNK
  14. BENADRYL [Concomitant]
     Active Substance: DIPHENHYDRAMINE HYDROCHLORIDE
     Indication: Premedication
     Dosage: UNK
     Route: 042
     Dates: start: 20241111, end: 20241111
  15. METFORMIN [Concomitant]
     Active Substance: METFORMIN HYDROCHLORIDE
     Dosage: UNK

REACTIONS (20)
  - Anal fissure [Recovered/Resolved]
  - Condition aggravated [Recovering/Resolving]
  - Therapeutic response shortened [Recovered/Resolved]
  - Anal infection [Recovered/Resolved]
  - Subcutaneous abscess [Not Recovered/Not Resolved]
  - Drug level below therapeutic [Unknown]
  - Drug level above therapeutic [Unknown]
  - Drug specific antibody present [Unknown]
  - Movement disorder [Not Recovered/Not Resolved]
  - Defaecation urgency [Recovered/Resolved]
  - Malaise [Not Recovered/Not Resolved]
  - Alopecia [Not Recovered/Not Resolved]
  - Constipation [Not Recovered/Not Resolved]
  - Abscess [Recovered/Resolved]
  - Arthralgia [Recovered/Resolved]
  - Pruritus [Recovered/Resolved]
  - Erythema [Recovered/Resolved]
  - Somnolence [Unknown]
  - Off label use [Unknown]
  - Inappropriate schedule of product administration [Unknown]

NARRATIVE: CASE EVENT DATE: 20231227
